FAERS Safety Report 14059987 (Version 5)
Quarter: 2018Q1

REPORT INFORMATION
  Report Type: Report from Study
  Country: CA (occurrence: CA)
  Receive Date: 20171006
  Receipt Date: 20180109
  Transmission Date: 20180508
  Serious: Yes (Death, Hospitalization, Other)
  Sender: FDA-Public Use
  Company Number: CA-TAKEDA-2017MPI008601

PATIENT
  Age: 77 Year
  Sex: Male

DRUGS (2)
  1. DEXAMETHASONE. [Suspect]
     Active Substance: DEXAMETHASONE
     Indication: PRODUCT USED FOR UNKNOWN INDICATION
     Dosage: UNK
     Route: 065
  2. IXAZOMIB [Suspect]
     Active Substance: IXAZOMIB
     Indication: PLASMA CELL MYELOMA
     Dosage: 4 MG, UNK
     Route: 048
     Dates: start: 20170908, end: 20171201

REACTIONS (6)
  - Blood immunoglobulin G increased [Unknown]
  - Fluid overload [Unknown]
  - Platelet count decreased [Unknown]
  - Renal failure [Fatal]
  - Plasma cell myeloma [Fatal]
  - Dyspnoea [Unknown]

NARRATIVE: CASE EVENT DATE: 20171025
